FAERS Safety Report 7633411 (Version 7)
Quarter: 2013Q2

REPORT INFORMATION
  Report Type: Spontaneous
  Country: US (occurrence: US)
  Receive Date: 20101019
  Receipt Date: 20130613
  Transmission Date: 20140414
  Serious: Yes (Hospitalization, Disabling, Other)
  Sender: FDA-Public Use
  Company Number: US-US-EMD SERONO, INC.-7003179

PATIENT
  Age: 26 Year
  Sex: Male

DRUGS (5)
  1. REBIF [Suspect]
     Indication: MULTIPLE SCLEROSIS
     Route: 058
     Dates: start: 20090107, end: 201004
  2. REBIF [Suspect]
     Route: 058
     Dates: start: 20100528
  3. REBIF [Suspect]
     Route: 058
     Dates: end: 201209
  4. LEXAPRO [Concomitant]
     Indication: DEPRESSION
     Dates: end: 201009
  5. PROPRANOLOL [Concomitant]
     Indication: PRODUCT USED FOR UNKNOWN INDICATION

REACTIONS (12)
  - Suicide attempt [Recovering/Resolving]
  - Blindness unilateral [Unknown]
  - Suicidal ideation [Recovering/Resolving]
  - Depression [Not Recovered/Not Resolved]
  - Drug ineffective [Not Recovered/Not Resolved]
  - Anxiety [Recovering/Resolving]
  - Stress [Not Recovered/Not Resolved]
  - Dyspnoea [Not Recovered/Not Resolved]
  - Feeling of body temperature change [Unknown]
  - Injection site pain [Not Recovered/Not Resolved]
  - Fatigue [Unknown]
  - Influenza like illness [Not Recovered/Not Resolved]
